FAERS Safety Report 25830152 (Version 1)
Quarter: 2025Q3

REPORT INFORMATION
  Report Type: Spontaneous
  Country: US (occurrence: US)
  Receive Date: 20250922
  Receipt Date: 20250922
  Transmission Date: 20251020
  Serious: Yes (Other)
  Sender: UNICHEM
  Company Number: US-UNICHEM LABORATORIES LIMITED-UNI-2025-US-003263

PATIENT

DRUGS (4)
  1. LAMOTRIGINE [Suspect]
     Active Substance: LAMOTRIGINE
     Indication: Epilepsy
     Route: 065
  2. LAMOTRIGINE [Suspect]
     Active Substance: LAMOTRIGINE
     Indication: Migraine
  3. BRIVARACETAM [Concomitant]
     Active Substance: BRIVARACETAM
     Indication: Epilepsy
     Route: 065
  4. BRIVARACETAM [Concomitant]
     Active Substance: BRIVARACETAM
     Indication: Migraine

REACTIONS (9)
  - Encephalopathy [Unknown]
  - Gaze palsy [Unknown]
  - Toxicity to various agents [Unknown]
  - Vestibular migraine [Unknown]
  - Fall [Unknown]
  - Nystagmus [Unknown]
  - Ataxia [Unknown]
  - Seizure [Unknown]
  - Diplopia [Unknown]
